FAERS Safety Report 9852311 (Version 1)
Quarter: 2014Q1

REPORT INFORMATION
  Report Type: Spontaneous
  Country: US (occurrence: None)
  Receive Date: 20140127
  Receipt Date: 20140127
  Transmission Date: 20141002
  Serious: Yes (Hospitalization)
  Sender: FDA-Public Use
  Company Number: 20140008

PATIENT
  Age: 46 Year
  Sex: Female
  Weight: 81.65 kg

DRUGS (2)
  1. SUBSYS (FENTANYL SUBLINGUAL SPRAY) 400MCG, INSYS THERAPEUTICS [Suspect]
     Indication: NEOPLASM
     Dosage: 400 MCG, 4 X DAY, SL
     Route: 060
     Dates: start: 201309
  2. SUBSYS (FENTANYL SUBLINGUAL SPRAY) 400MCG, INSYS THERAPEUTICS [Suspect]
     Indication: PAIN
     Dosage: 400 MCG, 4 X DAY, SL
     Route: 060
     Dates: start: 201309

REACTIONS (3)
  - Scar [None]
  - Abdominal pain [None]
  - Ill-defined disorder [None]
